FAERS Safety Report 8806363 (Version 1)
Quarter: 2012Q4

REPORT INFORMATION
  Report Type: Report from Study
  Country: JP (occurrence: JP)
  Receive Date: 20120925
  Receipt Date: 20120925
  Transmission Date: 20130627
  Serious: Yes (Other)
  Sender: FDA-Public Use
  Company Number: JP-ASTELLAS-2012JP008591

PATIENT
  Age: 68 Year
  Sex: Male
  Weight: 58 kg

DRUGS (5)
  1. MIRABEGRON [Suspect]
     Indication: HYPERTONIC BLADDER
     Dosage: 50 mg, UID/QD
     Route: 048
     Dates: start: 20120615, end: 20120809
  2. GASTER [Concomitant]
     Indication: GASTRIC ULCER
     Dosage: 40 mg, Unknown/D
     Route: 048
  3. GASTROM [Concomitant]
     Indication: GASTRIC ULCER
     Dosage: 2 g, Unknown/D
     Route: 048
  4. NU-LOTAN [Concomitant]
     Indication: HYPERTENSION
     Dosage: 50 mg, Unknown/D
     Route: 048
  5. ADALAT CR [Concomitant]
     Indication: HYPERTENSION
     Dosage: 20 mg, Unknown/D
     Route: 048

REACTIONS (1)
  - Dysuria [Recovering/Resolving]
